FAERS Safety Report 8343032-3 (Version None)
Quarter: 2012Q2

REPORT INFORMATION
  Report Type: 
  Country: None (occurrence: None)
  Receive Date: 20120508
  Receipt Date: 20120426
  Transmission Date: 20120825
  Serious: Yes (Other)
  Sender: FDA-Public Use
  Company Number: PHHY2012BR036535

PATIENT
  Sex: Female
  Weight: 48.9 kg

DRUGS (2)
  1. OSCAL D [Concomitant]
     Indication: BONE DISORDER
     Dosage: 1 DF, DAILY
     Route: 048
  2. DIOVAN HCT [Suspect]
     Indication: HYPERTENSION
     Dosage: 1 DF, DAILY (160/12.5 MG)
     Route: 048

REACTIONS (4)
  - FALL [None]
  - THROMBOSIS [None]
  - SPINAL PAIN [None]
  - SPINAL FRACTURE [None]
